FAERS Safety Report 7393654-1 (Version None)
Quarter: 2011Q2

REPORT INFORMATION
  Report Type: 
  Country: None (occurrence: None)
  Receive Date: 20110405
  Receipt Date: 20091122
  Transmission Date: 20111010
  Serious: Yes (Death, Other)
  Sender: FDA-Public Use
  Company Number: US-BAYER-200939800NA

PATIENT
  Sex: Female
  Weight: 65.76 kg

DRUGS (16)
  1. VERSED [Concomitant]
     Dosage: 10 MG, UNK
     Route: 042
     Dates: start: 20030101, end: 20060101
  2. BUMEX [Concomitant]
     Dosage: DRIP
     Route: 041
     Dates: start: 20060120, end: 20060127
  3. TRASYLOL [Suspect]
     Indication: CORONARY ARTERY BYPASS
     Dosage: 200 ML, LOADING DOSE
     Route: 040
     Dates: start: 20060116, end: 20060116
  4. TRASYLOL [Suspect]
     Dosage: 50 ML/HOUR
     Route: 042
     Dates: start: 20060116, end: 20060116
  5. FRESH FROZEN PLASMA [Concomitant]
     Dosage: 2 U, UNK
     Dates: start: 20060116
  6. PLATELETS [Concomitant]
     Dosage: 3 U, UNK
     Dates: start: 20060116
  7. PAVULON [Concomitant]
     Dosage: 75 MG, UNK
     Route: 042
     Dates: start: 20060116, end: 20060116
  8. RED BLOOD CELLS [Concomitant]
     Dosage: 6 U, UNK
     Dates: start: 20060116
  9. NORVASC [Concomitant]
     Dosage: 2.5 MG, QD
     Route: 048
     Dates: start: 20030101, end: 20060101
  10. LEVOXYL [Concomitant]
     Dosage: 0.05 MG, QD
     Route: 048
     Dates: start: 20030101, end: 20060101
  11. ISOFLURANE [Concomitant]
     Dosage: 0.5
     Route: 042
     Dates: start: 20060116, end: 20060116
  12. TRASYLOL [Suspect]
     Indication: AORTIC VALVE REPLACEMENT
     Dosage: 200 ML, INITIAL DOSE PUMP PRIME
     Route: 042
     Dates: start: 20060116, end: 20060116
  13. LIPITOR [Concomitant]
     Dosage: 20 MG, QD
     Route: 048
     Dates: start: 20030101, end: 20060101
  14. VECURONIUM BROMIDE [Concomitant]
     Dosage: 10 MG DURING SURGERY
     Route: 042
     Dates: start: 20060116, end: 20060116
  15. CONTRAST MEDIA [Concomitant]
     Indication: CATHETERISATION CARDIAC
     Dosage: UNK
     Dates: start: 20060104
  16. SUCCINYLCHOLINE CHLORIDE [Concomitant]
     Dosage: 250 MG, UNK
     Dates: start: 20060116, end: 20060116

REACTIONS (13)
  - FEAR [None]
  - PAIN [None]
  - INJURY [None]
  - MULTI-ORGAN FAILURE [None]
  - RENAL FAILURE [None]
  - EMOTIONAL DISTRESS [None]
  - UNEVALUABLE EVENT [None]
  - DEATH [None]
  - ANHEDONIA [None]
  - RENAL IMPAIRMENT [None]
  - STRESS [None]
  - RENAL INJURY [None]
  - ANXIETY [None]
